FAERS Safety Report 5902463-9 (Version None)
Quarter: 2008Q3

REPORT INFORMATION
  Report Type: 
  Country: None (occurrence: None)
  Receive Date: 20080929
  Receipt Date: 20080925
  Transmission Date: 20090109
  Serious: Yes (Other)
  Sender: FDA-Public Use
  Company Number: US-ASTRAZENECA-2008UW09415

PATIENT
  Age: 15835 Day
  Sex: Female
  Weight: 132 kg

DRUGS (3)
  1. SEROQUEL [Suspect]
     Indication: AFFECTIVE DISORDER
     Dosage: 50-400 MG
     Route: 048
     Dates: start: 20070101
  2. XANAX [Concomitant]
  3. ABILIFY [Concomitant]
     Dates: start: 20050301, end: 20050601

REACTIONS (3)
  - ARTHROPATHY [None]
  - DIABETES MELLITUS [None]
  - MENISCUS LESION [None]
